FAERS Safety Report 23935576 (Version 2)
Quarter: 2024Q3

REPORT INFORMATION
  Report Type: Spontaneous
  Country: US (occurrence: US)
  Receive Date: 20240604
  Receipt Date: 20240813
  Transmission Date: 20241016
  Serious: No
  Sender: BAUSCH AND LOMB
  Company Number: US-BAUSCHBL-2024BNL027834

PATIENT
  Sex: Female

DRUGS (3)
  1. XIIDRA [Suspect]
     Active Substance: LIFITEGRAST
     Indication: Product used for unknown indication
     Route: 047
  2. MIEBO [Suspect]
     Active Substance: PERFLUOROHEXYLOCTANE
     Indication: Product used for unknown indication
     Route: 047
  3. MIEBO [Suspect]
     Active Substance: PERFLUOROHEXYLOCTANE
     Route: 047

REACTIONS (6)
  - Erythema [Unknown]
  - Dysgeusia [Unknown]
  - Vision blurred [Unknown]
  - Headache [Unknown]
  - Inability to afford medication [Unknown]
  - Insurance issue [Unknown]
